FAERS Safety Report 7278330-8 (Version None)
Quarter: 2011Q1

REPORT INFORMATION
  Report Type: 
  Country: None (occurrence: None)
  Receive Date: 20110207
  Receipt Date: 20110128
  Transmission Date: 20110831
  Serious: Yes (Hospitalization, Other)
  Sender: FDA-Public Use
  Company Number: DE-ASTRAZENECA-2011SE05292

PATIENT
  Age: 0 Week
  Sex: Female
  Weight: 3.2 kg

DRUGS (1)
  1. QUETIAPINE [Suspect]
     Indication: SCHIZOPHRENIA, PARANOID TYPE
     Dosage: 300 [MG/D (-400) ]
     Route: 064

REACTIONS (2)
  - HYPOTONIA NEONATAL [None]
  - CYANOSIS NEONATAL [None]
